FAERS Safety Report 7785229-7 (Version None)
Quarter: 2011Q3

REPORT INFORMATION
  Report Type: 
  Country: None (occurrence: None)
  Receive Date: 20110929
  Receipt Date: 20110923
  Transmission Date: 20111222
  Serious: Yes (Other)
  Sender: FDA-Public Use
  Company Number: US-TEVA-302304USA

PATIENT
  Age: 45 Year
  Sex: Male

DRUGS (1)
  1. COPAXONE [Suspect]
     Indication: MULTIPLE SCLEROSIS
     Route: 058
     Dates: end: 20110801

REACTIONS (10)
  - HEADACHE [None]
  - GAIT DISTURBANCE [None]
  - ANAPHYLACTIC SHOCK [None]
  - DIZZINESS [None]
  - ERYTHEMA [None]
  - FUNCTIONAL GASTROINTESTINAL DISORDER [None]
  - RENAL PAIN [None]
  - ARTHRALGIA [None]
  - OCULAR HYPERAEMIA [None]
  - DYSURIA [None]
